FAERS Safety Report 6580865-8 (Version None)
Quarter: 2010Q1

REPORT INFORMATION
  Report Type: 
  Country: None (occurrence: None)
  Receive Date: 20100203
  Receipt Date: 20100119
  Transmission Date: 20100710
  Serious: Yes (Other)
  Sender: FDA-Public Use
  Company Number: 2009S1004746

PATIENT
  Age: 74 Year
  Sex: Female

DRUGS (6)
  1. EZ PREP KIT [Suspect]
     Indication: COLONOSCOPY
     Dosage: 75 ML;TOTAL;PO
     Route: 048
     Dates: start: 20080324, end: 20080324
  2. LOTREL [Concomitant]
  3. EVISTA [Concomitant]
  4. PREDNISONE TAB [Concomitant]
  5. ASPIRIN [Concomitant]
  6. VITAMIN D [Concomitant]

REACTIONS (2)
  - NEPHROCALCINOSIS [None]
  - RENAL DISORDER [None]
